FAERS Safety Report 9295678 (Version 1)
Quarter: 2013Q2

REPORT INFORMATION
  Report Type: Spontaneous
  Country: KR (occurrence: None)
  Receive Date: 20130514
  Receipt Date: 20130514
  Transmission Date: 20140414
  Serious: Yes (Hospitalization)
  Sender: FDA-Public Use
  Company Number: DSJ-2013-09717

PATIENT
  Age: 56 Year
  Sex: Female
  Weight: 50 kg

DRUGS (9)
  1. OLMETEC PLUS (HYDROCHLOROTHIAZIDE, OLMESARTAN MEDOXOMIL) (TABLET) (HYDROCHLOROTHIAZIDE, OLMESARTAN MEDOXOMIL) [Suspect]
     Indication: HYPERTENSION
     Dates: start: 2008, end: 20121106
  2. DOXORUBICIN [Suspect]
     Indication: BREAST CANCER
     Route: 042
     Dates: start: 20120814
  3. CYCLOPHOSPHAMIDE [Suspect]
     Indication: BREAST CANCER
     Route: 042
     Dates: start: 20120814
  4. DOCETAXEL [Suspect]
     Indication: BREAST CANCER
     Route: 042
     Dates: start: 20120811
  5. PERTUZUMAB [Suspect]
     Indication: BREAST CANCER
     Route: 042
     Dates: start: 20121108
  6. TRASTUZUMAB [Suspect]
     Indication: BREAST CANCER
     Route: 042
     Dates: start: 20121108
  7. AMLODIPINE (AMLODIPINE)(AMLODIPINE) [Concomitant]
  8. DILATREND (CARVEDILOL)(CARVEDILOL) [Concomitant]
  9. TEGRETOL (CARBAMAZEPINE)(CARBAMAZEPINE) [Concomitant]

REACTIONS (4)
  - Bradycardia [None]
  - Nodal arrhythmia [None]
  - Ejection fraction decreased [None]
  - Hyponatraemia [None]
